FAERS Safety Report 25793211 (Version 1)
Quarter: 2025Q3

REPORT INFORMATION
  Report Type: Spontaneous
  Country: US (occurrence: US)
  Receive Date: 20250911
  Receipt Date: 20250911
  Transmission Date: 20251020
  Serious: Yes (Life-Threatening, Hospitalization)
  Sender: BAUSCH AND LOMB
  Company Number: US-BAUSCH-BH-2025-017130

PATIENT
  Age: 68 Year
  Sex: Female

DRUGS (4)
  1. HYDROCORTISONE [Suspect]
     Active Substance: HYDROCORTISONE
     Indication: Hypopituitarism
     Route: 065
  2. GLIMEPIRIDE [Concomitant]
     Active Substance: GLIMEPIRIDE
     Indication: Diabetes mellitus
  3. LEVOTHYROXINE [Concomitant]
     Active Substance: LEVOTHYROXINE
     Indication: Hypothyroidism
  4. METFORMIN [Concomitant]
     Active Substance: METFORMIN HYDROCHLORIDE
     Indication: Diabetes mellitus

REACTIONS (7)
  - Secondary adrenocortical insufficiency [Recovering/Resolving]
  - Stress cardiomyopathy [Recovering/Resolving]
  - Generalised tonic-clonic seizure [Recovered/Resolved]
  - Steroid withdrawal syndrome [Recovering/Resolving]
  - Cerebral congestion [Recovering/Resolving]
  - Brain oedema [Recovering/Resolving]
  - Behaviour disorder [Recovering/Resolving]
